FAERS Safety Report 22797155 (Version 2)
Quarter: 2024Q1

REPORT INFORMATION
  Report Type: Spontaneous
  Country: CA (occurrence: CA)
  Receive Date: 20230808
  Receipt Date: 20240213
  Transmission Date: 20240410
  Serious: Yes (Other)
  Sender: FDA-Public Use
  Company Number: CA-BAXTER-2023BAX027695

PATIENT
  Sex: Female
  Weight: 2 kg

DRUGS (10)
  1. SODIUM CHLORIDE [Suspect]
     Active Substance: SODIUM CHLORIDE
     Indication: Vomiting
     Dosage: AT AN UNSPECIFIED DOSE AND FREQUENCY
     Route: 065
  2. SODIUM CHLORIDE [Suspect]
     Active Substance: SODIUM CHLORIDE
     Indication: Nausea
     Dosage: AT AN UNSPECIFIED DOSE AND FREQUENCY (DOSAGE FORM: NOT SPECIFIED)
     Route: 064
  3. CALCITONIN [Suspect]
     Active Substance: CALCITONIN
     Indication: Hypercalcaemia
     Dosage: AT AN UNSPECIFIED DOSE AND FREQUENCY (DOSAGE FORM: NOT SPECIFIED)
     Route: 064
  4. CALCIUM CARBONATE [Suspect]
     Active Substance: CALCIUM CARBONATE
     Indication: Product used for unknown indication
     Dosage: 750 MILLIGRAM, AT AN UNSPECIFIED FREQUENCY (DOSAGE FORM: NOT SPECIFIED)
     Route: 064
  5. DOXYLAMINE [Suspect]
     Active Substance: DOXYLAMINE
     Indication: Product used for unknown indication
     Dosage: 10.0 MILLIGRAM, AT AN UNSPECIFIED FREQUENCY
     Route: 064
  6. FOLIC ACID [Suspect]
     Active Substance: FOLIC ACID
     Indication: Product used for unknown indication
     Dosage: 1.0 MILLIGRAM, EVERY 1 DAYS
     Route: 064
  7. METOCLOPRAMIDE [Suspect]
     Active Substance: METOCLOPRAMIDE
     Indication: Vomiting
     Dosage: AT AN UNSPECIFIED DOSE AND FREQUENCY
     Route: 064
  8. METOCLOPRAMIDE [Suspect]
     Active Substance: METOCLOPRAMIDE
     Indication: Nausea
     Dosage: 10 MILLIGRAM, 1 EVERY 12 HOURS
     Route: 064
  9. PYRIDOXINE [Suspect]
     Active Substance: PYRIDOXINE
     Indication: Product used for unknown indication
     Dosage: 10 MILLIGRAM, AT AN UNSPECIFIED FREQUENCY
     Route: 064
  10. PANTOPRAZOLE [Suspect]
     Active Substance: PANTOPRAZOLE
     Indication: Product used for unknown indication
     Dosage: AT AN UNSPECIFIED DOSE AND FREQUENCY (DOSAGE FORM: TABLET (DELAYED-RELEASE) (TARO-PANTOPRAZOLE)
     Route: 064

REACTIONS (2)
  - Low birth weight baby [Unknown]
  - Foetal exposure during pregnancy [Unknown]
